FAERS Safety Report 24568275 (Version 1)
Quarter: 2024Q4

REPORT INFORMATION
  Report Type: Spontaneous
  Country: KZ (occurrence: KZ)
  Receive Date: 20241031
  Receipt Date: 20241031
  Transmission Date: 20250114
  Serious: Yes (Hospitalization, Other)
  Sender: NOVARTIS
  Company Number: KZ-002147023-NVSC2024KZ208903

PATIENT
  Sex: Male

DRUGS (2)
  1. VOTRIENT [Suspect]
     Active Substance: PAZOPANIB HYDROCHLORIDE
     Indication: Metastases to lung
     Dosage: 400 MG, BID (800 MG PER DAY)
     Route: 048
     Dates: end: 202410
  2. VOTRIENT [Suspect]
     Active Substance: PAZOPANIB HYDROCHLORIDE
     Indication: Sarcoma of skin

REACTIONS (10)
  - Diarrhoea [Recovering/Resolving]
  - Metastases to lung [Unknown]
  - Malignant neoplasm progression [Unknown]
  - Sarcoma of skin [Unknown]
  - Anaemia [Unknown]
  - Blood bilirubin increased [Unknown]
  - Nausea [Unknown]
  - Vomiting [Unknown]
  - Asthenia [Unknown]
  - Weight decreased [Unknown]
